FAERS Safety Report 9275441 (Version 1)
Quarter: 2013Q1

REPORT INFORMATION
  Report Type: Spontaneous
  Country: US (occurrence: None)
  Receive Date: 20121109
  Receipt Date: 20121109
  Transmission Date: 20140127
  Serious: Yes (Hospitalization)
  Sender: FDA-Public Use
  Company Number: 2012S1000547

PATIENT
  Age: 76 Year
  Sex: Female

DRUGS (10)
  1. CUBICIN (DAPTOMYCIN) [Suspect]
     Indication: OSTEOMYELITIS
     Route: 042
     Dates: start: 20120502, end: 20120516
  2. ESIDREX [Suspect]
     Route: 048
     Dates: start: 20120418, end: 20120504
  3. VANCOMYCIN (VANCOMYCIN) [Suspect]
     Route: 042
     Dates: start: 20120427, end: 20120502
  4. RIFADINE [Suspect]
     Indication: OSTEOMYELITIS
     Route: 048
     Dates: start: 20120502, end: 20120516
  5. HYZAAR [Concomitant]
  6. IPERTEN [Concomitant]
  7. KARDEGIC [Concomitant]
  8. GENTALLINE [Concomitant]
  9. ORBENTINE [Concomitant]
  10. FUROSEMIDE (FUROSEMIDE) [Suspect]
     Route: 042

REACTIONS (7)
  - Pleural disorder [None]
  - Sepsis [None]
  - Infection [None]
  - Gastrointestinal haemorrhage [None]
  - Anaemia [None]
  - Blood creatine increased [None]
  - Hypokalaemia [None]
